FAERS Safety Report 5518414-5 (Version None)
Quarter: 2007Q4

REPORT INFORMATION
  Report Type: 
  Country: None (occurrence: None)
  Receive Date: 20071113
  Receipt Date: 20071113
  Transmission Date: 20080405
  Serious: Yes (Hospitalization, Other)
  Sender: FDA-Public Use
  Company Number: None

PATIENT
  Age: 72 Year
  Sex: Male
  Weight: 104 kg

DRUGS (3)
  1. DOFETILIDE 0.125 MG, 0.25 MGPFIZER [Suspect]
     Indication: ATRIAL FIBRILLATION
     Dosage: 0.125 MG, 0.25 MG BID PO
     Route: 048
     Dates: start: 20071101, end: 20071106
  2. DOFETILIDE [Suspect]
  3. SIMVASTATIN 20 MG AMERICAN HEALTH [Suspect]
     Indication: HYPERLIPIDAEMIA
     Dosage: 20 MG QHS PO
     Route: 048
     Dates: start: 20071101, end: 20071106

REACTIONS (5)
  - ATRIAL FIBRILLATION [None]
  - CONDITION AGGRAVATED [None]
  - DRUG INTERACTION [None]
  - ELECTROCARDIOGRAM QT PROLONGED [None]
  - LIVER FUNCTION TEST ABNORMAL [None]
